FAERS Safety Report 10160768 (Version 1)
Quarter: 2014Q2

REPORT INFORMATION
  Report Type: Report from Study
  Country: IL (occurrence: IL)
  Receive Date: 20140508
  Receipt Date: 20140508
  Transmission Date: 20141212
  Serious: Yes (Other)
  Sender: FDA-Public Use
  Company Number: IL-BAYER-2014-064551

PATIENT
  Sex: Female

DRUGS (2)
  1. MIRENA [Suspect]
     Dosage: 20 MCG/24HR, CONT
     Route: 015
     Dates: start: 20131029
  2. DOXYLIN [Concomitant]
     Dosage: 100 MG, QD
     Route: 048
     Dates: start: 20131029

REACTIONS (6)
  - Haemorrhagic ovarian cyst [None]
  - Genital haemorrhage [None]
  - Device expulsion [None]
  - Uterine polyp [None]
  - Endometrial hypertrophy [None]
  - Ovarian cyst [None]
